FAERS Safety Report 8771629 (Version 1)
Quarter: 2012Q4

REPORT INFORMATION
  Report Type: 
  Country: JP (occurrence: JP)
  Receive Date: 20120906
  Receipt Date: 20120906
  Transmission Date: 20130627
  Serious: Yes (Life-Threatening)
  Sender: FDA-Public Use
  Company Number: JP-EISAI INC-E2090-02248-SPO-JP

PATIENT
  Age: 73 Year
  Sex: Female

DRUGS (7)
  1. EXCEGRAN [Suspect]
     Indication: VIOLENCE-RELATED SYMPTOM
     Route: 048
     Dates: start: 20120517, end: 20120712
  2. CALMDOWN [Concomitant]
     Indication: SLEEP LOSS
     Route: 048
  3. FLUNITRAZEPAM [Concomitant]
     Indication: SLEEP LOSS
     Route: 048
  4. YOKUKANSAN [Concomitant]
     Indication: BEHAVIORAL AND PSYCHIATRIC SYMPTOMS OF DEMENTIA
  5. ARICEPT [Concomitant]
     Indication: DEMENTIA
     Route: 048
  6. SEROQUEL [Concomitant]
     Indication: VIOLENCE-RELATED SYMPTOM
     Route: 048
  7. DEPROMEL [Concomitant]
     Indication: DEPRESSION
     Route: 048

REACTIONS (1)
  - Stevens-Johnson syndrome [Recovered/Resolved]
